FAERS Safety Report 13899019 (Version 1)
Quarter: 2017Q3

REPORT INFORMATION
  Report Type: Spontaneous
  Country: US (occurrence: US)
  Receive Date: 20170823
  Receipt Date: 20170823
  Transmission Date: 20171127
  Serious: No
  Sender: FDA-Public Use
  Company Number: None

PATIENT
  Age: 56 Year
  Sex: Female

DRUGS (1)
  1. LIDOCAINE. [Suspect]
     Active Substance: LIDOCAINE
     Indication: PAIN
     Dosage: 1 TOT - TOTAL DAILY TRANSDERAMAL
     Route: 062

REACTIONS (2)
  - Product adhesion issue [None]
  - Drug ineffective [None]

NARRATIVE: CASE EVENT DATE: 20170821
